FAERS Safety Report 20685880 (Version 2)
Quarter: 2023Q1

REPORT INFORMATION
  Report Type: Spontaneous
  Country: US (occurrence: US)
  Receive Date: 20220407
  Receipt Date: 20230106
  Transmission Date: 20230417
  Serious: No
  Sender: FDA-Public Use
  Company Number: US-PFIZER INC-2020114907

PATIENT
  Age: 69 Year
  Sex: Female

DRUGS (7)
  1. CHANTIX [Suspect]
     Active Substance: VARENICLINE TARTRATE
     Dosage: 1/2 TAB PO AT NIGHT X 3 DAYS , THEN 1/2 TAB BID (TWICE A DAY) X 3 DAYS, THEN 1 TAB 2 TIMES DAILY
     Route: 048
  2. CHANTIX [Suspect]
     Active Substance: VARENICLINE TARTRATE
     Dosage: 1/2 TAB PO AT NIGHT X 3 DAYS , THEN 1/2 TAB BID (TWICE A DAY) X 3 DAYS, THEN 1 TAB 2 TIMES DAILY
     Route: 048
  3. CHANTIX [Suspect]
     Active Substance: VARENICLINE TARTRATE
     Dosage: 1/2 TAB PO AT NIGHT X 3 DAYS , THEN 1/2 TAB BID (TWICE A DAY) X 3 DAYS, THEN 1 TAB 2 TIMES DAILY
     Route: 048
  4. CHANTIX [Suspect]
     Active Substance: VARENICLINE TARTRATE
     Dosage: UNK
  5. CHANTIX [Suspect]
     Active Substance: VARENICLINE TARTRATE
     Dosage: 1 MG OR TABS, 1 TAB 2 TIMES DAILY
  6. CHANTIX [Suspect]
     Active Substance: VARENICLINE TARTRATE
     Dosage: 0.5 MG, DAILY
     Route: 048
  7. CHANTIX [Suspect]
     Active Substance: VARENICLINE TARTRATE
     Dosage: 0.5 MG OR TABS 1 BID (TWICE A DAY) X3DAYS
     Route: 048

REACTIONS (2)
  - Product prescribing error [Unknown]
  - Therapeutic product effect incomplete [Unknown]
